FAERS Safety Report 11787531 (Version 4)
Quarter: 2017Q3

REPORT INFORMATION
  Report Type: Report from Study
  Country: US (occurrence: US)
  Receive Date: 20151130
  Receipt Date: 20170714
  Transmission Date: 20171127
  Serious: Yes (Hospitalization, Other)
  Sender: FDA-Public Use
  Company Number: US-SA-2015SA181536

PATIENT
  Age: 51 Year
  Sex: Male

DRUGS (7)
  1. LEMTRADA [Suspect]
     Active Substance: ALEMTUZUMAB
     Indication: MULTIPLE SCLEROSIS
     Route: 041
     Dates: start: 20151005, end: 20151009
  2. BACLOFEN. [Concomitant]
     Active Substance: BACLOFEN
  3. BUPROPION. [Concomitant]
     Active Substance: BUPROPION
  4. ACYCLOVIR. [Concomitant]
     Active Substance: ACYCLOVIR
  5. AMPYRA [Concomitant]
     Active Substance: DALFAMPRIDINE
  6. SERTRALINE [Concomitant]
     Active Substance: SERTRALINE HYDROCHLORIDE
  7. MYRBETRIQ [Concomitant]
     Active Substance: MIRABEGRON

REACTIONS (12)
  - Chills [Unknown]
  - Urinary tract infection [Not Recovered/Not Resolved]
  - Memory impairment [Not Recovered/Not Resolved]
  - Tremor [Unknown]
  - Encephalopathy [Unknown]
  - Delirium [Unknown]
  - Confusional state [Not Recovered/Not Resolved]
  - Infection [Not Recovered/Not Resolved]
  - Basilar migraine [Unknown]
  - Cystitis [Recovered/Resolved]
  - Body temperature increased [Unknown]
  - Drug ineffective [Unknown]

NARRATIVE: CASE EVENT DATE: 2015
